FAERS Safety Report 23076912 (Version 2)
Quarter: 2025Q3

REPORT INFORMATION
  Report Type: Spontaneous
  Country: CA (occurrence: CA)
  Receive Date: 20231018
  Receipt Date: 20250711
  Transmission Date: 20251020
  Serious: Yes (Death, Life-Threatening, Hospitalization, Disabling, Other)
  Sender: SANDOZ
  Company Number: CA-002147023-NVSC2022CA127245

PATIENT
  Age: 48 Year
  Sex: Female
  Weight: 68 kg

DRUGS (270)
  1. ADALIMUMAB [Suspect]
     Active Substance: ADALIMUMAB
     Indication: Rheumatoid arthritis
     Route: 058
  2. ADALIMUMAB [Suspect]
     Active Substance: ADALIMUMAB
     Route: 064
  3. ALENDRONATE SODIUM [Suspect]
     Active Substance: ALENDRONATE SODIUM
     Route: 016
  4. ALENDRONATE SODIUM [Suspect]
     Active Substance: ALENDRONATE SODIUM
     Indication: Rheumatoid arthritis
     Route: 048
  5. ALENDRONATE SODIUM [Suspect]
     Active Substance: ALENDRONATE SODIUM
     Route: 064
  6. ALENDRONIC ACID [Suspect]
     Active Substance: ALENDRONIC ACID
     Route: 048
  7. ALENDRONIC ACID [Suspect]
     Active Substance: ALENDRONIC ACID
     Route: 048
  8. ALENDRONIC ACID [Suspect]
     Active Substance: ALENDRONIC ACID
     Route: 048
  9. ALENDRONIC ACID [Suspect]
     Active Substance: ALENDRONIC ACID
     Indication: Product used for unknown indication
     Route: 016
  10. ACETAMINOPHEN [Suspect]
     Active Substance: ACETAMINOPHEN
     Route: 065
  11. ACETAMINOPHEN [Suspect]
     Active Substance: ACETAMINOPHEN
     Indication: Product used for unknown indication
     Route: 065
  12. ACTEMRA [Suspect]
     Active Substance: TOCILIZUMAB
     Route: 042
  13. ACTEMRA [Suspect]
     Active Substance: TOCILIZUMAB
     Route: 048
  14. ACTEMRA [Suspect]
     Active Substance: TOCILIZUMAB
     Route: 065
  15. ACTEMRA [Suspect]
     Active Substance: TOCILIZUMAB
     Route: 042
  16. ACTEMRA [Suspect]
     Active Substance: TOCILIZUMAB
     Route: 042
  17. ACTEMRA [Suspect]
     Active Substance: TOCILIZUMAB
     Indication: Rheumatoid arthritis
     Route: 042
  18. ACTEMRA [Suspect]
     Active Substance: TOCILIZUMAB
     Route: 016
  19. ACTEMRA [Suspect]
     Active Substance: TOCILIZUMAB
     Route: 058
  20. ACTEMRA [Suspect]
     Active Substance: TOCILIZUMAB
     Route: 064
  21. PREDNISONE [Suspect]
     Active Substance: PREDNISONE
     Route: 065
  22. PREDNISONE [Suspect]
     Active Substance: PREDNISONE
     Route: 048
  23. PREDNISONE [Suspect]
     Active Substance: PREDNISONE
     Indication: Product used for unknown indication
     Route: 048
  24. PREDNISONE [Suspect]
     Active Substance: PREDNISONE
     Route: 064
  25. PREDNISONE [Suspect]
     Active Substance: PREDNISONE
     Route: 065
  26. ARAVA [Suspect]
     Active Substance: LEFLUNOMIDE
     Dosage: 1 DF, QD
     Route: 065
  27. ARAVA [Suspect]
     Active Substance: LEFLUNOMIDE
     Indication: Rheumatoid arthritis
     Dosage: 10 MG, QD
     Route: 065
  28. ARAVA [Suspect]
     Active Substance: LEFLUNOMIDE
     Route: 048
  29. ARAVA [Suspect]
     Active Substance: LEFLUNOMIDE
     Route: 005
  30. ARAVA [Suspect]
     Active Substance: LEFLUNOMIDE
     Route: 048
  31. ARAVA [Suspect]
     Active Substance: LEFLUNOMIDE
     Route: 065
  32. CHOLECALCIFEROL [Suspect]
     Active Substance: CHOLECALCIFEROL
     Indication: Rheumatoid arthritis
     Route: 065
  33. CALCIUM CARBONATE [Suspect]
     Active Substance: CALCIUM CARBONATE
     Indication: Product used for unknown indication
     Route: 065
  34. CALCIUM GLUBIONATE [Suspect]
     Active Substance: CALCIUM GLUBIONATE
     Indication: Product used for unknown indication
     Route: 065
  35. CALCIUM GLUBIONATE [Suspect]
     Active Substance: CALCIUM GLUBIONATE
     Route: 016
  36. CALCIUM GLUBIONATE [Suspect]
     Active Substance: CALCIUM GLUBIONATE
     Route: 065
  37. CERTOLIZUMAB PEGOL [Suspect]
     Active Substance: CERTOLIZUMAB PEGOL
     Indication: Product used for unknown indication
     Route: 058
  38. CERTOLIZUMAB PEGOL [Suspect]
     Active Substance: CERTOLIZUMAB PEGOL
     Route: 058
  39. CERTOLIZUMAB PEGOL [Suspect]
     Active Substance: CERTOLIZUMAB PEGOL
     Route: 065
  40. CETIRIZINE HYDROCHLORIDE [Suspect]
     Active Substance: CETIRIZINE HYDROCHLORIDE
     Dosage: 10 MG, QD
     Route: 048
  41. CETIRIZINE HYDROCHLORIDE [Suspect]
     Active Substance: CETIRIZINE HYDROCHLORIDE
     Dosage: 10 MG, QD
     Route: 048
  42. CETIRIZINE HYDROCHLORIDE [Suspect]
     Active Substance: CETIRIZINE HYDROCHLORIDE
     Route: 065
  43. CETIRIZINE HYDROCHLORIDE [Suspect]
     Active Substance: CETIRIZINE HYDROCHLORIDE
     Route: 048
  44. CETIRIZINE HYDROCHLORIDE [Suspect]
     Active Substance: CETIRIZINE HYDROCHLORIDE
     Route: 048
  45. CETIRIZINE HYDROCHLORIDE [Suspect]
     Active Substance: CETIRIZINE HYDROCHLORIDE
     Route: 064
  46. CETIRIZINE HYDROCHLORIDE [Suspect]
     Active Substance: CETIRIZINE HYDROCHLORIDE
     Route: 065
  47. CETIRIZINE HYDROCHLORIDE [Suspect]
     Active Substance: CETIRIZINE HYDROCHLORIDE
     Route: 065
  48. CETIRIZINE HYDROCHLORIDE [Suspect]
     Active Substance: CETIRIZINE HYDROCHLORIDE
     Indication: Rheumatoid arthritis
     Route: 065
  49. CHLORHEXIDINE [Suspect]
     Active Substance: CHLORHEXIDINE
     Indication: Rheumatoid arthritis
     Route: 005
  50. CHLORHEXIDINE [Suspect]
     Active Substance: CHLORHEXIDINE
     Indication: Product used for unknown indication
     Route: 061
  51. CHLORHEXIDINE [Suspect]
     Active Substance: CHLORHEXIDINE
     Route: 061
  52. CHLORHEXIDINE ACETATE [Suspect]
     Active Substance: CHLORHEXIDINE ACETATE
     Indication: Product used for unknown indication
     Route: 065
  53. CIMZIA [Suspect]
     Active Substance: CERTOLIZUMAB PEGOL
     Route: 058
  54. CIMZIA [Suspect]
     Active Substance: CERTOLIZUMAB PEGOL
     Route: 058
  55. CIMZIA [Suspect]
     Active Substance: CERTOLIZUMAB PEGOL
     Indication: Rheumatoid arthritis
     Route: 064
  56. CIMZIA [Suspect]
     Active Substance: CERTOLIZUMAB PEGOL
     Route: 058
  57. CIMZIA [Suspect]
     Active Substance: CERTOLIZUMAB PEGOL
     Route: 058
  58. CIMZIA [Suspect]
     Active Substance: CERTOLIZUMAB PEGOL
     Route: 064
  59. CIMZIA [Suspect]
     Active Substance: CERTOLIZUMAB PEGOL
     Route: 065
  60. CORTISONE ACETATE [Suspect]
     Active Substance: CORTISONE ACETATE
     Route: 061
  61. CORTISONE ACETATE [Suspect]
     Active Substance: CORTISONE ACETATE
     Route: 061
  62. CORTISONE ACETATE [Suspect]
     Active Substance: CORTISONE ACETATE
     Route: 061
  63. CORTISONE ACETATE [Suspect]
     Active Substance: CORTISONE ACETATE
     Route: 064
  64. CORTISONE ACETATE [Suspect]
     Active Substance: CORTISONE ACETATE
     Route: 064
  65. CORTISONE ACETATE [Suspect]
     Active Substance: CORTISONE ACETATE
     Indication: Rheumatoid arthritis
     Route: 065
  66. CORTISONE ACETATE [Suspect]
     Active Substance: CORTISONE ACETATE
     Route: 065
  67. CORTISONE ACETATE [Suspect]
     Active Substance: CORTISONE ACETATE
     Route: 048
  68. CORTISONE ACETATE [Suspect]
     Active Substance: CORTISONE ACETATE
     Route: 048
  69. CORTISONE ACETATE [Suspect]
     Active Substance: CORTISONE ACETATE
     Route: 061
  70. CORTISONE ACETATE [Suspect]
     Active Substance: CORTISONE ACETATE
     Route: 065
  71. CORTISONE ACETATE [Suspect]
     Active Substance: CORTISONE ACETATE
     Route: 065
  72. COSENTYX [Suspect]
     Active Substance: SECUKINUMAB
     Indication: Rheumatoid arthritis
     Route: 005
  73. DICLOFENAC SODIUM [Suspect]
     Active Substance: DICLOFENAC SODIUM
     Indication: Product used for unknown indication
     Route: 065
  74. DIPHENHYDRAMINE HYDROCHLORIDE [Suspect]
     Active Substance: DIPHENHYDRAMINE HYDROCHLORIDE
     Route: 065
  75. DIPHENHYDRAMINE HYDROCHLORIDE [Suspect]
     Active Substance: DIPHENHYDRAMINE HYDROCHLORIDE
     Indication: Product used for unknown indication
     Route: 065
  76. DESOXIMETASONE [Suspect]
     Active Substance: DESOXIMETASONE
     Dosage: 25 MG, QD
     Route: 061
  77. DESOXIMETASONE [Suspect]
     Active Substance: DESOXIMETASONE
     Route: 003
  78. DESOXIMETASONE [Suspect]
     Active Substance: DESOXIMETASONE
     Indication: Rheumatoid arthritis
     Route: 003
  79. DESOXIMETASONE [Suspect]
     Active Substance: DESOXIMETASONE
     Route: 048
  80. DESOXIMETASONE [Suspect]
     Active Substance: DESOXIMETASONE
     Route: 048
  81. DESOXIMETASONE [Suspect]
     Active Substance: DESOXIMETASONE
     Route: 058
  82. DESOXIMETASONE [Suspect]
     Active Substance: DESOXIMETASONE
     Route: 064
  83. DESOXIMETASONE [Suspect]
     Active Substance: DESOXIMETASONE
     Route: 065
  84. DESOXIMETASONE [Suspect]
     Active Substance: DESOXIMETASONE
     Route: 067
  85. DESOXIMETASONE [Suspect]
     Active Substance: DESOXIMETASONE
     Route: 067
  86. ERELZI [Suspect]
     Active Substance: ETANERCEPT-SZZS
     Dosage: 50 MG, QW
     Route: 058
  87. ERELZI [Suspect]
     Active Substance: ETANERCEPT-SZZS
     Route: 058
  88. ERELZI [Suspect]
     Active Substance: ETANERCEPT-SZZS
     Route: 065
  89. ERELZI [Suspect]
     Active Substance: ETANERCEPT-SZZS
     Indication: Rheumatoid arthritis
     Route: 058
  90. ENBREL [Suspect]
     Active Substance: ETANERCEPT
     Dosage: 1 DF, QW
     Route: 058
  91. ENBREL [Suspect]
     Active Substance: ETANERCEPT
     Dosage: 20 MG, QW
     Route: 058
  92. ENBREL [Suspect]
     Active Substance: ETANERCEPT
     Dosage: 50 MG, QW
     Route: 058
  93. ENBREL [Suspect]
     Active Substance: ETANERCEPT
     Dosage: 50 MG, QD
     Route: 064
  94. ENBREL [Suspect]
     Active Substance: ETANERCEPT
     Indication: Rheumatoid arthritis
     Route: 058
  95. ENBREL [Suspect]
     Active Substance: ETANERCEPT
     Route: 058
  96. ENBREL [Suspect]
     Active Substance: ETANERCEPT
     Route: 058
  97. ENBREL [Suspect]
     Active Substance: ETANERCEPT
     Route: 064
  98. ENBREL [Suspect]
     Active Substance: ETANERCEPT
     Route: 065
  99. FLUMETHASONE PIVALATE [Suspect]
     Active Substance: FLUMETHASONE PIVALATE
     Route: 058
  100. FLUMETHASONE PIVALATE [Suspect]
     Active Substance: FLUMETHASONE PIVALATE
     Indication: Rheumatoid arthritis
     Route: 065
  101. FOLIC ACID [Suspect]
     Active Substance: FOLIC ACID
     Route: 048
  102. FOLIC ACID [Suspect]
     Active Substance: FOLIC ACID
     Route: 058
  103. FOLIC ACID [Suspect]
     Active Substance: FOLIC ACID
     Route: 065
  104. FOLIC ACID [Suspect]
     Active Substance: FOLIC ACID
     Route: 048
  105. FOLIC ACID [Suspect]
     Active Substance: FOLIC ACID
     Route: 065
  106. FOLIC ACID [Suspect]
     Active Substance: FOLIC ACID
     Indication: Product used for unknown indication
     Route: 048
  107. FOLIC ACID [Suspect]
     Active Substance: FOLIC ACID
     Route: 065
  108. FOSAMAX [Suspect]
     Active Substance: ALENDRONATE SODIUM
     Route: 048
  109. FOSAMAX [Suspect]
     Active Substance: ALENDRONATE SODIUM
     Route: 065
  110. FOSAMAX [Suspect]
     Active Substance: ALENDRONATE SODIUM
     Route: 016
  111. FOSAMAX [Suspect]
     Active Substance: ALENDRONATE SODIUM
     Route: 058
  112. FOSAMAX [Suspect]
     Active Substance: ALENDRONATE SODIUM
     Route: 058
  113. FOSAMAX [Suspect]
     Active Substance: ALENDRONATE SODIUM
     Route: 065
  114. FOSAMAX [Suspect]
     Active Substance: ALENDRONATE SODIUM
     Indication: Rheumatoid arthritis
     Route: 064
  115. HYDROCORTISONE [Suspect]
     Active Substance: HYDROCORTISONE
     Route: 048
  116. HYDROCORTISONE [Suspect]
     Active Substance: HYDROCORTISONE
     Route: 061
  117. HYDROCORTISONE [Suspect]
     Active Substance: HYDROCORTISONE
     Indication: Rheumatoid arthritis
     Route: 003
  118. HYDROCORTISONE [Suspect]
     Active Substance: HYDROCORTISONE
     Route: 048
  119. HYDROCORTISONE [Suspect]
     Active Substance: HYDROCORTISONE
     Route: 058
  120. HYDROCORTISONE [Suspect]
     Active Substance: HYDROCORTISONE
     Route: 064
  121. HYDROCORTISONE [Suspect]
     Active Substance: HYDROCORTISONE
     Route: 065
  122. HUMIRA [Suspect]
     Active Substance: ADALIMUMAB
     Indication: Rheumatoid arthritis
     Route: 058
  123. HUMIRA [Suspect]
     Active Substance: ADALIMUMAB
     Route: 058
  124. HUMIRA [Suspect]
     Active Substance: ADALIMUMAB
     Route: 064
  125. HUMIRA [Suspect]
     Active Substance: ADALIMUMAB
     Indication: Psoriatic arthropathy
     Route: 058
  126. HUMIRA [Suspect]
     Active Substance: ADALIMUMAB
     Route: 064
  127. HUMIRA [Suspect]
     Active Substance: ADALIMUMAB
     Dosage: 400 MG, QD
     Route: 058
  128. HUMIRA [Suspect]
     Active Substance: ADALIMUMAB
     Route: 064
  129. HYDROXYCHLOROQUINE [Suspect]
     Active Substance: HYDROXYCHLOROQUINE
     Dosage: 40 MG, QD
     Route: 048
  130. HYDROXYCHLOROQUINE [Suspect]
     Active Substance: HYDROXYCHLOROQUINE
     Route: 065
  131. HYDROXYCHLOROQUINE [Suspect]
     Active Substance: HYDROXYCHLOROQUINE
     Dosage: 400 MG, QD
     Route: 048
  132. HYDROXYCHLOROQUINE [Suspect]
     Active Substance: HYDROXYCHLOROQUINE
     Dosage: 400 MG, QD
     Route: 065
  133. HYDROXYCHLOROQUINE [Suspect]
     Active Substance: HYDROXYCHLOROQUINE
     Dosage: 400 MG, QD
     Route: 065
  134. HYDROXYCHLOROQUINE [Suspect]
     Active Substance: HYDROXYCHLOROQUINE
     Dosage: 400 MG, QD
     Route: 065
  135. HYDROXYCHLOROQUINE [Suspect]
     Active Substance: HYDROXYCHLOROQUINE
     Route: 064
  136. HYDROXYCHLOROQUINE [Suspect]
     Active Substance: HYDROXYCHLOROQUINE
     Route: 065
  137. HYDROXYCHLOROQUINE [Suspect]
     Active Substance: HYDROXYCHLOROQUINE
     Route: 005
  138. HYDROXYCHLOROQUINE [Suspect]
     Active Substance: HYDROXYCHLOROQUINE
     Route: 048
  139. HYDROXYCHLOROQUINE [Suspect]
     Active Substance: HYDROXYCHLOROQUINE
     Indication: Rheumatoid arthritis
     Route: 064
  140. HYDROXYCHLOROQUINE [Suspect]
     Active Substance: HYDROXYCHLOROQUINE
     Route: 065
  141. HYDROXYCHLOROQUINE [Suspect]
     Active Substance: HYDROXYCHLOROQUINE
     Indication: Product used for unknown indication
     Route: 005
  142. IBUPROFEN [Suspect]
     Active Substance: IBUPROFEN
     Indication: Product used for unknown indication
     Route: 065
  143. KEVZARA [Suspect]
     Active Substance: SARILUMAB
     Route: 064
  144. KEVZARA [Suspect]
     Active Substance: SARILUMAB
     Indication: Product used for unknown indication
     Route: 065
  145. KEVZARA [Suspect]
     Active Substance: SARILUMAB
     Route: 065
  146. METHOTREXATE [Suspect]
     Active Substance: METHOTREXATE
     Dosage: 20 MG, QD
     Route: 048
  147. METHOTREXATE [Suspect]
     Active Substance: METHOTREXATE
     Route: 013
  148. METHOTREXATE [Suspect]
     Active Substance: METHOTREXATE
     Route: 065
  149. METHOTREXATE [Suspect]
     Active Substance: METHOTREXATE
     Indication: Product used for unknown indication
     Route: 065
  150. METHOTREXATE [Suspect]
     Active Substance: METHOTREXATE
     Indication: Rheumatoid arthritis
     Dosage: 25 MG, QD
     Route: 042
  151. METHOTREXATE [Suspect]
     Active Substance: METHOTREXATE
     Dosage: 25 MG, QD
     Route: 048
  152. METHOTREXATE [Suspect]
     Active Substance: METHOTREXATE
     Route: 058
  153. METHOTREXATE [Suspect]
     Active Substance: METHOTREXATE
     Route: 064
  154. METHOTREXATE [Suspect]
     Active Substance: METHOTREXATE
     Dosage: 500 MG, QD
     Route: 048
  155. METHOTREXATE [Suspect]
     Active Substance: METHOTREXATE
     Route: 016
  156. METHOTREXATE [Suspect]
     Active Substance: METHOTREXATE
     Route: 058
  157. MINOCYCLINE [Suspect]
     Active Substance: MINOCYCLINE HYDROCHLORIDE
     Indication: Product used for unknown indication
     Route: 065
  158. MINOCYCLINE HYDROCHLORIDE [Suspect]
     Active Substance: MINOCYCLINE HYDROCHLORIDE
     Route: 065
  159. MINOCYCLINE HYDROCHLORIDE [Suspect]
     Active Substance: MINOCYCLINE HYDROCHLORIDE
     Indication: Product used for unknown indication
     Route: 065
  160. ORENCIA [Suspect]
     Active Substance: ABATACEPT
     Dosage: 125 MG, QW
     Route: 058
  161. ORENCIA [Suspect]
     Active Substance: ABATACEPT
     Route: 058
  162. ORENCIA [Suspect]
     Active Substance: ABATACEPT
     Route: 058
  163. ORENCIA [Suspect]
     Active Substance: ABATACEPT
     Dosage: 3 MG, BID
     Route: 048
  164. ORENCIA [Suspect]
     Active Substance: ABATACEPT
     Route: 058
  165. ORENCIA [Suspect]
     Active Substance: ABATACEPT
     Route: 064
  166. ORENCIA [Suspect]
     Active Substance: ABATACEPT
     Indication: Rheumatoid arthritis
     Route: 042
  167. OTEZLA [Suspect]
     Active Substance: APREMILAST
     Dosage: 3 MG, QD
     Route: 048
  168. OTEZLA [Suspect]
     Active Substance: APREMILAST
     Indication: Product used for unknown indication
     Dosage: 3 MG, BID
     Route: 048
  169. OTEZLA [Suspect]
     Active Substance: APREMILAST
     Dosage: 6 MG, QD
     Route: 065
  170. OTEZLA [Suspect]
     Active Substance: APREMILAST
     Route: 048
  171. OTEZLA [Suspect]
     Active Substance: APREMILAST
     Route: 048
  172. PERIOGARD [Suspect]
     Active Substance: CHLORHEXIDINE GLUCONATE
     Indication: Product used for unknown indication
     Route: 065
  173. PHTHALYLSULFATHIAZOLE [Suspect]
     Active Substance: PHTHALYLSULFATHIAZOLE
     Dosage: 1000 MG, QD
     Route: 016
  174. PHTHALYLSULFATHIAZOLE [Suspect]
     Active Substance: PHTHALYLSULFATHIAZOLE
     Dosage: 400 MG, QD
     Route: 065
  175. PHTHALYLSULFATHIAZOLE [Suspect]
     Active Substance: PHTHALYLSULFATHIAZOLE
     Route: 064
  176. PHTHALYLSULFATHIAZOLE [Suspect]
     Active Substance: PHTHALYLSULFATHIAZOLE
     Dosage: 500 MG, QD
     Route: 048
  177. PHTHALYLSULFATHIAZOLE [Suspect]
     Active Substance: PHTHALYLSULFATHIAZOLE
     Route: 016
  178. PHTHALYLSULFATHIAZOLE [Suspect]
     Active Substance: PHTHALYLSULFATHIAZOLE
     Route: 065
  179. PHTHALYLSULFATHIAZOLE [Suspect]
     Active Substance: PHTHALYLSULFATHIAZOLE
     Route: 065
  180. PHTHALYLSULFATHIAZOLE [Suspect]
     Active Substance: PHTHALYLSULFATHIAZOLE
     Indication: Rheumatoid arthritis
     Route: 064
  181. PLAQUENIL [Suspect]
     Active Substance: HYDROXYCHLOROQUINE SULFATE
     Dosage: 4 MG, QD
     Route: 048
  182. PLAQUENIL [Suspect]
     Active Substance: HYDROXYCHLOROQUINE SULFATE
     Route: 058
  183. PLAQUENIL [Suspect]
     Active Substance: HYDROXYCHLOROQUINE SULFATE
     Indication: Psoriatic arthropathy
     Dosage: 40 MG, QD
     Route: 048
  184. PLAQUENIL [Suspect]
     Active Substance: HYDROXYCHLOROQUINE SULFATE
     Indication: Rheumatoid arthritis
     Dosage: 400 MG, QD
     Route: 048
  185. PLAQUENIL [Suspect]
     Active Substance: HYDROXYCHLOROQUINE SULFATE
     Dosage: 420 MG, QD
     Route: 065
  186. PLAQUENIL [Suspect]
     Active Substance: HYDROXYCHLOROQUINE SULFATE
     Route: 048
  187. PREDNISONE [Suspect]
     Active Substance: PREDNISONE
     Indication: Rheumatoid arthritis
     Route: 042
  188. PREDNISONE [Suspect]
     Active Substance: PREDNISONE
     Route: 065
  189. PREDNISONE [Suspect]
     Active Substance: PREDNISONE
     Route: 048
  190. PREDNISONE [Suspect]
     Active Substance: PREDNISONE
     Route: 061
  191. PREDNISONE [Suspect]
     Active Substance: PREDNISONE
     Route: 064
  192. PREDNISONE [Suspect]
     Active Substance: PREDNISONE
     Route: 048
  193. PREDNISONE [Suspect]
     Active Substance: PREDNISONE
     Route: 064
  194. PREDNISONE [Suspect]
     Active Substance: PREDNISONE
     Route: 065
  195. PREDNISONE [Suspect]
     Active Substance: PREDNISONE
     Route: 065
  196. PREDNISONE [Suspect]
     Active Substance: PREDNISONE
     Route: 048
  197. PREDNISONE [Suspect]
     Active Substance: PREDNISONE
     Route: 016
  198. PREDNISONE [Suspect]
     Active Substance: PREDNISONE
     Route: 048
  199. PSEUDOEPHEDRINE HYDROCHLORIDE [Suspect]
     Active Substance: PSEUDOEPHEDRINE HYDROCHLORIDE
     Route: 048
  200. PSEUDOEPHEDRINE HYDROCHLORIDE [Suspect]
     Active Substance: PSEUDOEPHEDRINE HYDROCHLORIDE
     Route: 064
  201. PSEUDOEPHEDRINE HYDROCHLORIDE [Suspect]
     Active Substance: PSEUDOEPHEDRINE HYDROCHLORIDE
     Route: 065
  202. PSEUDOEPHEDRINE HYDROCHLORIDE [Suspect]
     Active Substance: PSEUDOEPHEDRINE HYDROCHLORIDE
     Indication: Rheumatoid arthritis
     Route: 048
  203. RITUXIMAB [Suspect]
     Active Substance: RITUXIMAB
     Route: 041
  204. RITUXIMAB [Suspect]
     Active Substance: RITUXIMAB
     Route: 042
  205. RITUXIMAB [Suspect]
     Active Substance: RITUXIMAB
     Route: 058
  206. RITUXIMAB [Suspect]
     Active Substance: RITUXIMAB
     Indication: Rheumatoid arthritis
     Route: 064
  207. CETIRIZINE HYDROCHLORIDE\PSEUDOEPHEDRINE HYDROCHLORIDE [Suspect]
     Active Substance: CETIRIZINE HYDROCHLORIDE\PSEUDOEPHEDRINE HYDROCHLORIDE
     Dosage: 10 MG, QD
     Route: 048
  208. CETIRIZINE HYDROCHLORIDE\PSEUDOEPHEDRINE HYDROCHLORIDE [Suspect]
     Active Substance: CETIRIZINE HYDROCHLORIDE\PSEUDOEPHEDRINE HYDROCHLORIDE
     Route: 065
  209. CETIRIZINE HYDROCHLORIDE\PSEUDOEPHEDRINE HYDROCHLORIDE [Suspect]
     Active Substance: CETIRIZINE HYDROCHLORIDE\PSEUDOEPHEDRINE HYDROCHLORIDE
     Route: 065
  210. CETIRIZINE HYDROCHLORIDE\PSEUDOEPHEDRINE HYDROCHLORIDE [Suspect]
     Active Substance: CETIRIZINE HYDROCHLORIDE\PSEUDOEPHEDRINE HYDROCHLORIDE
     Indication: Rheumatoid arthritis
     Route: 067
  211. SECUKINUMAB [Suspect]
     Active Substance: SECUKINUMAB
     Indication: Product used for unknown indication
     Route: 065
  212. SIMPONI [Suspect]
     Active Substance: GOLIMUMAB
     Route: 058
  213. SIMPONI [Suspect]
     Active Substance: GOLIMUMAB
     Route: 058
  214. SIMPONI [Suspect]
     Active Substance: GOLIMUMAB
     Route: 058
  215. SIMPONI [Suspect]
     Active Substance: GOLIMUMAB
     Route: 042
  216. SIMPONI [Suspect]
     Active Substance: GOLIMUMAB
     Route: 058
  217. SIMPONI [Suspect]
     Active Substance: GOLIMUMAB
     Route: 064
  218. SIMPONI [Suspect]
     Active Substance: GOLIMUMAB
     Indication: Rheumatoid arthritis
     Route: 058
  219. SOLU-MEDROL [Suspect]
     Active Substance: METHYLPREDNISOLONE SODIUM SUCCINATE
     Route: 064
  220. SOLU-MEDROL [Suspect]
     Active Substance: METHYLPREDNISOLONE SODIUM SUCCINATE
     Indication: Product used for unknown indication
     Route: 065
  221. STELARA [Suspect]
     Active Substance: USTEKINUMAB
     Route: 065
  222. STELARA [Suspect]
     Active Substance: USTEKINUMAB
     Indication: Rheumatoid arthritis
     Route: 058
  223. STELARA [Suspect]
     Active Substance: USTEKINUMAB
     Route: 058
  224. STELARA [Suspect]
     Active Substance: USTEKINUMAB
     Route: 058
  225. STELARA [Suspect]
     Active Substance: USTEKINUMAB
     Route: 064
  226. SULFAMETHOXAZOLE [Suspect]
     Active Substance: SULFAMETHOXAZOLE
     Indication: Product used for unknown indication
     Route: 065
  227. SULFASALAZINE [Suspect]
     Active Substance: SULFASALAZINE
     Dosage: 1 G, QD
     Route: 048
  228. SULFASALAZINE [Suspect]
     Active Substance: SULFASALAZINE
     Dosage: 1 G, BID
     Route: 048
  229. SULFASALAZINE [Suspect]
     Active Substance: SULFASALAZINE
     Route: 048
  230. SULFASALAZINE [Suspect]
     Active Substance: SULFASALAZINE
     Route: 065
  231. SULFASALAZINE [Suspect]
     Active Substance: SULFASALAZINE
     Route: 065
  232. SULFASALAZINE [Suspect]
     Active Substance: SULFASALAZINE
     Dosage: 1000 MG, QD
     Route: 048
  233. SULFASALAZINE [Suspect]
     Active Substance: SULFASALAZINE
     Dosage: 1000 MG, QD
     Route: 048
  234. SULFASALAZINE [Suspect]
     Active Substance: SULFASALAZINE
     Route: 048
  235. SULFASALAZINE [Suspect]
     Active Substance: SULFASALAZINE
     Route: 064
  236. SULFASALAZINE [Suspect]
     Active Substance: SULFASALAZINE
     Route: 048
  237. SULFASALAZINE [Suspect]
     Active Substance: SULFASALAZINE
     Dosage: 2 MG, BID
     Route: 058
  238. SULFASALAZINE [Suspect]
     Active Substance: SULFASALAZINE
     Route: 065
  239. SULFASALAZINE [Suspect]
     Active Substance: SULFASALAZINE
     Route: 065
  240. SULFASALAZINE [Suspect]
     Active Substance: SULFASALAZINE
     Indication: Rheumatoid arthritis
     Dosage: 500 MG, QD
     Route: 048
  241. SULFASALAZINE [Suspect]
     Active Substance: SULFASALAZINE
     Dosage: 500 MG, QD
     Route: 048
  242. SULFASALAZINE [Suspect]
     Active Substance: SULFASALAZINE
     Dosage: 500 MG, QD
     Route: 048
  243. SULFASALAZINE [Suspect]
     Active Substance: SULFASALAZINE
     Dosage: 500 MG, QD
     Route: 048
  244. SULFASALAZINE [Suspect]
     Active Substance: SULFASALAZINE
     Dosage: 500 MG, QD
     Route: 065
  245. SULFASALAZINE [Suspect]
     Active Substance: SULFASALAZINE
     Route: 048
  246. SULFASALAZINE [Suspect]
     Active Substance: SULFASALAZINE
     Route: 058
  247. SULFASALAZINE [Suspect]
     Active Substance: SULFASALAZINE
     Route: 064
  248. SULFASALAZINE [Suspect]
     Active Substance: SULFASALAZINE
     Route: 065
  249. SULFASALAZINE [Suspect]
     Active Substance: SULFASALAZINE
     Dosage: UNK, QD
     Route: 048
  250. SULFASALAZINE [Suspect]
     Active Substance: SULFASALAZINE
     Dosage: UNK, QD
     Route: 065
  251. SULFASALAZINE [Suspect]
     Active Substance: SULFASALAZINE
     Route: 048
  252. TOCILIZUMAB [Suspect]
     Active Substance: TOCILIZUMAB
     Route: 042
  253. TOCILIZUMAB [Suspect]
     Active Substance: TOCILIZUMAB
     Route: 061
  254. TOCILIZUMAB [Suspect]
     Active Substance: TOCILIZUMAB
     Route: 064
  255. TOCILIZUMAB [Suspect]
     Active Substance: TOCILIZUMAB
     Route: 065
  256. TOCILIZUMAB [Suspect]
     Active Substance: TOCILIZUMAB
     Indication: Rheumatoid arthritis
     Route: 058
  257. VITAMIN B COMPLEX [Suspect]
     Active Substance: CYANOCOBALAMIN\DEXPANTHENOL\NIACINAMIDE\PYRIDOXINE HYDROCHLORIDE\RIBOFLAVIN 5^-PHOSPHATE SODIUM\THIA
     Indication: Product used for unknown indication
     Route: 065
  258. VITAMIN D3 [Suspect]
     Active Substance: CHOLECALCIFEROL
     Indication: Rheumatoid arthritis
     Route: 065
  259. PREDNISONE [Suspect]
     Active Substance: PREDNISONE
     Route: 048
  260. PREDNISONE [Suspect]
     Active Substance: PREDNISONE
     Route: 064
  261. PREDNISONE [Suspect]
     Active Substance: PREDNISONE
     Indication: Rheumatoid arthritis
     Route: 048
  262. QUETIAPINE [Concomitant]
     Active Substance: QUETIAPINE
     Indication: Product used for unknown indication
     Route: 065
  263. XELJANZ [Concomitant]
     Active Substance: TOFACITINIB CITRATE
     Dosage: 5 MG, QW
     Route: 048
  264. XELJANZ [Concomitant]
     Active Substance: TOFACITINIB CITRATE
     Dosage: 5 MG, QD
     Route: 065
  265. XELJANZ [Concomitant]
     Active Substance: TOFACITINIB CITRATE
     Dosage: 5 MG, BID
     Route: 048
  266. XELJANZ [Concomitant]
     Active Substance: TOFACITINIB CITRATE
     Indication: Rheumatoid arthritis
     Route: 048
  267. XELJANZ [Concomitant]
     Active Substance: TOFACITINIB CITRATE
     Route: 048
  268. XELJANZ [Concomitant]
     Active Substance: TOFACITINIB CITRATE
     Route: 065
  269. XELJANZ [Concomitant]
     Active Substance: TOFACITINIB CITRATE
     Route: 064
  270. XELJANZ [Concomitant]
     Active Substance: TOFACITINIB CITRATE
     Route: 065

REACTIONS (89)
  - Peripheral venous disease [Fatal]
  - Pyrexia [Fatal]
  - Facet joint syndrome [Fatal]
  - Stomatitis [Fatal]
  - Anti-cyclic citrullinated peptide antibody positive [Fatal]
  - Contraindicated product administered [Fatal]
  - Musculoskeletal stiffness [Fatal]
  - Rheumatoid arthritis [Fatal]
  - Systemic lupus erythematosus [Fatal]
  - Arthropathy [Fatal]
  - Blister [Fatal]
  - Dizziness [Fatal]
  - Diarrhoea [Fatal]
  - Duodenal ulcer perforation [Fatal]
  - Injury [Fatal]
  - Hypersensitivity [Fatal]
  - Joint swelling [Fatal]
  - Hand deformity [Fatal]
  - Liver injury [Fatal]
  - Lower respiratory tract infection [Fatal]
  - Osteoarthritis [Fatal]
  - Pericarditis [Fatal]
  - Urticaria [Fatal]
  - Bursitis [Fatal]
  - Abdominal pain upper [Fatal]
  - C-reactive protein abnormal [Fatal]
  - Confusional state [Fatal]
  - Dry mouth [Fatal]
  - Folliculitis [Fatal]
  - Impaired healing [Fatal]
  - Joint range of motion decreased [Fatal]
  - Lung disorder [Fatal]
  - Muscle injury [Fatal]
  - Muscle spasms [Fatal]
  - Nasopharyngitis [Fatal]
  - Night sweats [Fatal]
  - Obesity [Fatal]
  - Oedema [Fatal]
  - Paraesthesia [Fatal]
  - Psoriatic arthropathy [Fatal]
  - Rash [Fatal]
  - Rheumatoid factor positive [Fatal]
  - Synovitis [Fatal]
  - Vomiting [Fatal]
  - Wound [Fatal]
  - Wheezing [Fatal]
  - Adjustment disorder with depressed mood [Fatal]
  - Amnesia [Fatal]
  - Anxiety [Fatal]
  - Asthenia [Fatal]
  - Asthma [Fatal]
  - Autoimmune disorder [Fatal]
  - Contusion [Fatal]
  - Deep vein thrombosis postoperative [Fatal]
  - Delirium [Fatal]
  - Depression [Fatal]
  - Dislocation of vertebra [Fatal]
  - Dyspepsia [Fatal]
  - Gait disturbance [Fatal]
  - Gait inability [Fatal]
  - Gastrointestinal disorder [Fatal]
  - Grip strength decreased [Fatal]
  - Lower limb fracture [Fatal]
  - Medication error [Fatal]
  - Memory impairment [Fatal]
  - Migraine [Fatal]
  - Muscle spasticity [Fatal]
  - Muscular weakness [Fatal]
  - Musculoskeletal pain [Fatal]
  - Respiratory disorder [Fatal]
  - Road traffic accident [Fatal]
  - Sciatica [Fatal]
  - Seronegative arthritis [Fatal]
  - Sinusitis [Fatal]
  - Sleep disorder [Fatal]
  - Sleep disorder due to general medical condition, insomnia type [Fatal]
  - Normal newborn [Fatal]
  - Abdominal discomfort [Fatal]
  - Weight decreased [Fatal]
  - Weight increased [Fatal]
  - Underdose [Fatal]
  - Maternal exposure during pregnancy [Fatal]
  - Therapeutic product effect decreased [Fatal]
  - Prescribed underdose [Fatal]
  - Treatment failure [Fatal]
  - Therapy non-responder [Fatal]
  - Prescribed overdose [Fatal]
  - Off label use [Fatal]
  - Product use issue [Fatal]
